FAERS Safety Report 5976375-9 (Version None)
Quarter: 2008Q4

REPORT INFORMATION
  Report Type: 
  Country: None (occurrence: None)
  Receive Date: 20081202
  Receipt Date: 20081125
  Transmission Date: 20090506
  Serious: Yes (Other)
  Sender: FDA-Public Use
  Company Number: US-B.I. PHARMACEUTICALS,INC./RIDGEFIELD-2008-BP-12721BP

PATIENT
  Age: 19 Year
  Sex: Female

DRUGS (2)
  1. DULCOLAX [Suspect]
     Indication: CONSTIPATION
     Dosage: 50MG
     Route: 048
  2. AMITILA [Concomitant]

REACTIONS (12)
  - ABDOMINAL PAIN UPPER [None]
  - ANGER [None]
  - ASTHENIA [None]
  - CHEST DISCOMFORT [None]
  - CHEST PAIN [None]
  - DIZZINESS [None]
  - DRUG ABUSE [None]
  - FRUSTRATION [None]
  - HEART RATE INCREASED [None]
  - HYPERHIDROSIS [None]
  - HYPOTENSION [None]
  - OVERDOSE [None]
